FAERS Safety Report 8469572-4 (Version None)
Quarter: 2012Q2

REPORT INFORMATION
  Report Type: 
  Country: None (occurrence: None)
  Receive Date: 20120626
  Receipt Date: 20120615
  Transmission Date: 20120825
  Serious: Yes (Hospitalization)
  Sender: FDA-Public Use
  Company Number: CA-FRI-1000036611

PATIENT
  Age: 77 Year
  Sex: Female

DRUGS (1)
  1. ROFLUMILAST [Suspect]
     Indication: CHRONIC OBSTRUCTIVE PULMONARY DISEASE
     Dosage: 0.25 DF
     Dates: start: 20120529, end: 20120531

REACTIONS (9)
  - AGITATION [None]
  - PNEUMONIA [None]
  - PAIN [None]
  - DIARRHOEA [None]
  - MALAISE [None]
  - BACK PAIN [None]
  - MOOD SWINGS [None]
  - RESPIRATORY DISTRESS [None]
  - DYSPNOEA [None]
